FAERS Safety Report 4616217-7 (Version None)
Quarter: 2005Q1

REPORT INFORMATION
  Report Type: 
  Country: None (occurrence: None)
  Receive Date: 20050321
  Receipt Date: 20050314
  Transmission Date: 20050727
  Serious: Yes (Hospitalization)
  Sender: FDA-Public Use
  Company Number: 230584K05USA

PATIENT
  Age: 40 Year
  Sex: Female

DRUGS (2)
  1. REBIF [Suspect]
     Indication: MULTIPLE SCLEROSIS
     Dosage: SEE IMAGE
     Route: 058
     Dates: start: 20020701, end: 20040911
  2. REBIF [Suspect]
     Indication: MULTIPLE SCLEROSIS
     Dosage: SEE IMAGE
     Route: 058
     Dates: start: 20050124, end: 20050208

REACTIONS (12)
  - AUTONOMIC NERVOUS SYSTEM IMBALANCE [None]
  - BRADYCARDIA [None]
  - CARDIAC DISORDER [None]
  - DISCOMFORT [None]
  - DRUG INEFFECTIVE [None]
  - IMPLANT SITE INFECTION [None]
  - MALAISE [None]
  - MOVEMENT DISORDER [None]
  - PYREXIA [None]
  - SURGICAL PROCEDURE REPEATED [None]
  - SYNCOPE [None]
  - VOMITING [None]
